FAERS Safety Report 24866858 (Version 2)
Quarter: 2025Q1

REPORT INFORMATION
  Report Type: Spontaneous
  Country: ES (occurrence: ES)
  Receive Date: 20250121
  Receipt Date: 20250123
  Transmission Date: 20250409
  Serious: Yes (Other)
  Sender: SANOFI AVENTIS
  Company Number: ES-BIOVITRUM-2025-ES-000574

PATIENT
  Age: 48 Year
  Sex: Male

DRUGS (2)
  1. ELOCTA [Suspect]
     Active Substance: EFMOROCTOCOG ALFA
     Indication: Product used for unknown indication
     Dosage: 3000 (UNIT NOT REPORTED), Q3D (EVERY 72 HOURS NORMAL DOSE TAKEN + 2 ADDITIONAL DOSES IN THE TWO SUBS
     Route: 042
  2. ELOCTA [Suspect]
     Active Substance: EFMOROCTOCOG ALFA
     Indication: Product used for unknown indication
     Dosage: 3000 (UNIT NOT REPORTED), Q3D (EVERY 72 HOURS NORMAL DOSE TAKEN + 2 ADDITIONAL DOSES IN THE TWO SUBS
     Route: 042

REACTIONS (2)
  - Haemarthrosis [Unknown]
  - Drug ineffective [Unknown]

NARRATIVE: CASE EVENT DATE: 20241008
